APPROVED DRUG PRODUCT: FAMCICLOVIR
Active Ingredient: FAMCICLOVIR
Strength: 500MG
Dosage Form/Route: TABLET;ORAL
Application: A201022 | Product #003 | TE Code: AB
Applicant: MACLEODS PHARMACEUTICALS LTD
Approved: Jan 12, 2012 | RLD: No | RS: No | Type: RX